FAERS Safety Report 8097676-7 (Version None)
Quarter: 2012Q1

REPORT INFORMATION
  Report Type: 
  Country: None (occurrence: None)
  Receive Date: 20120128
  Receipt Date: 20110711
  Transmission Date: 20120608
  Serious: No
  Sender: FDA-Public Use
  Company Number: US-ABBOTT-11P-163-0838853-00

PATIENT
  Age: 41 Year
  Sex: Male

DRUGS (3)
  1. HUMIRA [Suspect]
     Indication: CROHN'S DISEASE
     Dates: start: 20090101, end: 20101001
  2. HUMIRA [Suspect]
     Dates: start: 20110501
  3. HUMIRA [Suspect]
     Dates: start: 20090101, end: 20090101

REACTIONS (4)
  - LUNG INFECTION [None]
  - DIARRHOEA [None]
  - INJECTION SITE PAIN [None]
  - ABDOMINAL PAIN [None]
